FAERS Safety Report 8343859 (Version 9)
Quarter: 2017Q1

REPORT INFORMATION
  Report Type: Spontaneous
  Country: US (occurrence: US)
  Receive Date: 20120119
  Receipt Date: 20170113
  Transmission Date: 20170429
  Serious: Yes (Hospitalization, Other)
  Sender: FDA-Public Use
  Company Number: US-009507513-1201USA02277

PATIENT
  Sex: Female
  Weight: 74.84 kg

DRUGS (3)
  1. FOSAMAX [Suspect]
     Active Substance: ALENDRONATE SODIUM
     Indication: OSTEOPOROSIS
     Dosage: 10 MG, QD
     Route: 048
     Dates: start: 19981223
  2. FOSAMAX [Suspect]
     Active Substance: ALENDRONATE SODIUM
     Dosage: 70 MG, QW
     Route: 048
     Dates: start: 20000314, end: 20060627
  3. ACTONEL [Suspect]
     Active Substance: RISEDRONATE SODIUM
     Indication: OSTEOPOROSIS
     Dosage: UNK
     Route: 065
     Dates: start: 20060813, end: 20060913

REACTIONS (83)
  - Small intestinal obstruction [Unknown]
  - Hernia [Not Recovered/Not Resolved]
  - Low turnover osteopathy [Unknown]
  - Upper limb fracture [Unknown]
  - Chest injury [Unknown]
  - Rhinitis [Unknown]
  - Transient ischaemic attack [Unknown]
  - Conjunctival haemorrhage [Unknown]
  - Cataract [Unknown]
  - Compression fracture [Unknown]
  - Osteoarthritis [Not Recovered/Not Resolved]
  - Dementia [Unknown]
  - Hiatus hernia [Not Recovered/Not Resolved]
  - Hypothyroidism [Unknown]
  - Osteoarthritis [Unknown]
  - Musculoskeletal chest pain [Unknown]
  - Musculoskeletal pain [Unknown]
  - Gastrooesophageal reflux disease [Unknown]
  - Arthralgia [Unknown]
  - Arthropathy [Unknown]
  - Tonsillar disorder [Unknown]
  - Diverticulitis [Unknown]
  - Spinal compression fracture [Unknown]
  - Mobility decreased [Unknown]
  - Hypertension [Unknown]
  - Diverticulum [Unknown]
  - Cerebral ischaemia [Unknown]
  - Sinusitis [Unknown]
  - Helicobacter infection [Unknown]
  - Spinal decompression [Unknown]
  - Dehydration [Unknown]
  - Urinary incontinence [Unknown]
  - Ilium fracture [Unknown]
  - Diverticulitis [Unknown]
  - Bone loss [Unknown]
  - Radiculopathy [Unknown]
  - Subdural haematoma [Unknown]
  - Lacunar infarction [Unknown]
  - Lower respiratory tract infection [Unknown]
  - Otitis media [Unknown]
  - Increased tendency to bruise [Unknown]
  - Mastoiditis [Unknown]
  - Uterine disorder [Unknown]
  - Gallbladder disorder [Unknown]
  - Fall [Unknown]
  - Haemorrhagic anaemia [Unknown]
  - Spinal compression fracture [Unknown]
  - Depression [Unknown]
  - Spinal column stenosis [Unknown]
  - Vertebral foraminal stenosis [Unknown]
  - Fractured ischium [Unknown]
  - Tremor [Unknown]
  - Cough [Unknown]
  - Gastritis [Unknown]
  - Headache [Unknown]
  - Dysphagia [Unknown]
  - Adenoidal disorder [Unknown]
  - Deafness neurosensory [Unknown]
  - Spinal compression fracture [Unknown]
  - Fall [Unknown]
  - Mass [Unknown]
  - Arteriosclerosis [Unknown]
  - Tinnitus [Unknown]
  - Mastoid disorder [Unknown]
  - Oesophageal stenosis [Unknown]
  - Lymphocytic leukaemia [Unknown]
  - Gastrointestinal disorder [Unknown]
  - Fall [Unknown]
  - Spondylolisthesis [Not Recovered/Not Resolved]
  - Cerebral atrophy [Unknown]
  - Haemorrhage intracranial [Unknown]
  - Atelectasis [Unknown]
  - Skin lesion [Unknown]
  - Sinus congestion [Unknown]
  - Femur fracture [Unknown]
  - Peritonitis [Unknown]
  - Hiatus hernia [Unknown]
  - Anxiety [Unknown]
  - Bone disorder [Unknown]
  - Contusion [Unknown]
  - Tympanic membrane disorder [Unknown]
  - Orthopaedic procedure [Unknown]
  - Hypoxia [Unknown]

NARRATIVE: CASE EVENT DATE: 1999
